FAERS Safety Report 18927207 (Version 1)
Quarter: 2021Q1

REPORT INFORMATION
  Report Type: Spontaneous
  Country: US (occurrence: US)
  Receive Date: 20210222
  Receipt Date: 20210222
  Transmission Date: 20210420
  Serious: Yes (Other)
  Sender: FDA-Public Use
  Company Number: None

PATIENT
  Sex: Female

DRUGS (1)
  1. RIVASTIGMINE 6 MG [Suspect]
     Active Substance: RIVASTIGMINE

REACTIONS (2)
  - Drug intolerance [None]
  - Vomiting [None]
